FAERS Safety Report 7314885-2 (Version None)
Quarter: 2011Q1

REPORT INFORMATION
  Report Type: 
  Country: None (occurrence: None)
  Receive Date: 20110225
  Receipt Date: 20100202
  Transmission Date: 20110831
  Serious: No
  Sender: FDA-Public Use
  Company Number: US-MYLANLABS-2010S1000964

PATIENT
  Age: 32 Year
  Sex: Female
  Weight: 54 kg

DRUGS (2)
  1. AMNESTEEM [Suspect]
     Indication: ACNE
     Route: 048
     Dates: start: 20091117, end: 20091216
  2. AMNESTEEM [Suspect]
     Route: 048
     Dates: start: 20091217, end: 20091228

REACTIONS (2)
  - NECK PAIN [None]
  - HEADACHE [None]
